FAERS Safety Report 21166483 (Version 5)
Quarter: 2022Q4

REPORT INFORMATION
  Report Type: Report from Study
  Country: US (occurrence: US)
  Receive Date: 20220803
  Receipt Date: 20221118
  Transmission Date: 20230113
  Serious: No
  Sender: FDA-Public Use
  Company Number: US-NOVARTISTESTPH-NVSC2022US174487

PATIENT
  Sex: Male

DRUGS (1)
  1. TASIGNA [Suspect]
     Active Substance: NILOTINIB
     Indication: Philadelphia positive chronic myeloid leukaemia
     Dosage: 300 MG, BID
     Route: 048
     Dates: start: 202207

REACTIONS (9)
  - Fluid retention [Unknown]
  - Rhinorrhoea [Unknown]
  - Cough [Unknown]
  - Constipation [Unknown]
  - Dizziness [Not Recovered/Not Resolved]
  - Nausea [Not Recovered/Not Resolved]
  - Headache [Unknown]
  - Peripheral swelling [Unknown]
  - Rash [Unknown]
